FAERS Safety Report 10100203 (Version 3)
Quarter: 2014Q2

REPORT INFORMATION
  Report Type: Spontaneous
  Country: JP (occurrence: JP)
  Receive Date: 20140423
  Receipt Date: 20140630
  Transmission Date: 20141212
  Serious: Yes (Other)
  Sender: FDA-Public Use
  Company Number: JP-OTSUKA-JP-2014-13290

PATIENT
  Age: 69 Year
  Sex: Female

DRUGS (3)
  1. SAMSCA [Suspect]
     Indication: OEDEMA DUE TO HEPATIC DISEASE
     Dosage: 3.75 MG MILLIGRAM(S), DAILY DOSE
     Route: 048
     Dates: start: 20131025, end: 201311
  2. AMINOLEBAN EN [Concomitant]
     Dosage: 150 G GRAM(S), DAILY DOSE
     Route: 048
     Dates: end: 20131030
  3. AMINOLEBAN EN [Concomitant]
     Dosage: 150 G GRAM(S), DAILY DOSE
     Route: 048
     Dates: start: 20131102

REACTIONS (1)
  - Hepatic encephalopathy [Recovered/Resolved]
